FAERS Safety Report 6228552-X (Version None)
Quarter: 2009Q2

REPORT INFORMATION
  Report Type: 
  Country: None (occurrence: None)
  Receive Date: 20090612
  Receipt Date: 20090602
  Transmission Date: 20091009
  Serious: Yes (Hospitalization, Other)
  Sender: FDA-Public Use
  Company Number: PHHY2009AU12470

PATIENT
  Sex: Male

DRUGS (3)
  1. CLOZARIL [Suspect]
     Indication: SCHIZOPHRENIA
     Dosage: 175 MG, UNK
     Route: 048
     Dates: start: 20090311, end: 20090324
  2. OLANZAPINE [Concomitant]
     Dosage: 15 MG, UNK
  3. SUBOXONE [Concomitant]
     Dosage: 8 MG, UNK

REACTIONS (17)
  - ABDOMINAL PAIN [None]
  - BLOOD CREATININE INCREASED [None]
  - BLOOD PRESSURE DECREASED [None]
  - CHEST PAIN [None]
  - CHILLS [None]
  - HEADACHE [None]
  - MYALGIA [None]
  - MYOCARDITIS [None]
  - MYOPERICARDITIS [None]
  - NAUSEA [None]
  - OEDEMA PERIPHERAL [None]
  - PERICARDITIS [None]
  - PLEURISY [None]
  - PYREXIA [None]
  - SINUS TACHYCARDIA [None]
  - TACHYCARDIA [None]
  - TROPONIN I INCREASED [None]
